FAERS Safety Report 9248914 (Version 1)
Quarter: 2013Q2

REPORT INFORMATION
  Report Type: Spontaneous
  Country: US (occurrence: US)
  Receive Date: 20130423
  Receipt Date: 20130423
  Transmission Date: 20140414
  Serious: No
  Sender: FDA-Public Use
  Company Number: US-009507513-1304USA007883

PATIENT
  Age: 71 Year
  Sex: Female

DRUGS (2)
  1. FOSAMAX [Suspect]
  2. SOLIRIS [Suspect]
     Indication: PAROXYSMAL NOCTURNAL HAEMOGLOBINURIA
     Route: 042

REACTIONS (2)
  - Bone loss [Unknown]
  - Tooth disorder [Unknown]
